FAERS Safety Report 22243338 (Version 1)
Quarter: 2023Q2

REPORT INFORMATION
  Report Type: Spontaneous
  Country: GB (occurrence: GB)
  Receive Date: 20230424
  Receipt Date: 20230424
  Transmission Date: 20230721
  Serious: Yes (Other)
  Sender: FDA-Public Use
  Company Number: None

PATIENT
  Age: 54 Year
  Sex: Female
  Weight: 107 kg

DRUGS (8)
  1. METFORMIN [Suspect]
     Active Substance: METFORMIN HYDROCHLORIDE
     Indication: Product used for unknown indication
     Dosage: 500 MILLIGRAM
     Route: 048
     Dates: start: 20230403
  2. AMOXICILLIN [Concomitant]
     Active Substance: AMOXICILLIN
     Indication: Cough
     Dosage: UNK
     Route: 065
     Dates: start: 20230203, end: 20230208
  3. ESTRADIOL [Concomitant]
     Active Substance: ESTRADIOL
     Dosage: UNK (USE AS DIRECTED)
     Route: 065
     Dates: start: 20201211
  4. ESTRADIOL [Concomitant]
     Active Substance: ESTRADIOL
     Dosage: 1 DOSAGE FORM, BIWEEKLY
     Route: 065
     Dates: start: 20221011
  5. EZETIMIBE [Concomitant]
     Active Substance: EZETIMIBE
     Dosage: 1 DOSAGE FORM, QD
     Route: 065
     Dates: start: 20220405
  6. GLICLAZIDE [Concomitant]
     Active Substance: GLICLAZIDE
     Dosage: 1 DOSAGE FORM, QD(EVENING MEAL)
     Route: 048
     Dates: start: 20230403
  7. GLUCOPHAGE [Concomitant]
     Active Substance: METFORMIN HYDROCHLORIDE
     Dosage: 1 DOSAGE FORM, QD (EVENING MEAL)
     Route: 048
     Dates: start: 20230325, end: 20230403
  8. METFORMIN HYDROCHLORIDE [Concomitant]
     Active Substance: METFORMIN HYDROCHLORIDE
     Dosage: 1 DOSAGE FORM, BID (ONE WITH BREAKFAST AND ONE WITH EVENING MEAL )
     Route: 065
     Dates: start: 20220119, end: 20230325

REACTIONS (1)
  - Gastrointestinal disorder [Recovered/Resolved]
